FAERS Safety Report 18355256 (Version 1)
Quarter: 2020Q4

REPORT INFORMATION
  Report Type: Other
  Country: BR (occurrence: BR)
  Receive Date: 20201007
  Receipt Date: 20201007
  Transmission Date: 20210114
  Serious: Yes (Life-Threatening, Hospitalization, Other)
  Sender: FDA-Public Use
  Company Number: BR-COREPHARMA LLC-2092438

PATIENT
  Age: 48 Year
  Sex: Male

DRUGS (1)
  1. CAPTOPRIL. [Suspect]
     Active Substance: CAPTOPRIL
     Indication: PREMEDICATION
     Route: 042

REACTIONS (6)
  - Eyelid ptosis [Recovered/Resolved]
  - Sedation [Recovered/Resolved]
  - Abdominal pain [Recovered/Resolved]
  - Depressed level of consciousness [Recovered/Resolved]
  - Thrombocytopenia [Recovered/Resolved]
  - Leukocytosis [Recovered/Resolved]
